FAERS Safety Report 4450460-5 (Version None)
Quarter: 2004Q3

REPORT INFORMATION
  Report Type: 
  Country: None (occurrence: None)
  Receive Date: 20040914
  Receipt Date: 20031211
  Transmission Date: 20050211
  Serious: Yes (Life-Threatening, Hospitalization)
  Sender: FDA-Public Use
  Company Number: 2003-DE-06170ZA

PATIENT
  Age: 50 Year
  Sex: Female

DRUGS (4)
  1. MOBIC [Suspect]
     Indication: PHARYNGITIS
     Dosage: 15 MG/1.5 ML (SEE TEXT), IM
     Route: 030
     Dates: start: 20031120, end: 20031120
  2. FEMIGEL (ESTRADIOL) [Concomitant]
  3. DISPRIN (ACETYLSALICYLIC ACID) [Concomitant]
  4. CELESTONE [Concomitant]

REACTIONS (8)
  - ANAPHYLACTIC SHOCK [None]
  - BLOOD PRESSURE DECREASED [None]
  - CIRCULATORY COLLAPSE [None]
  - HEADACHE [None]
  - HEART RATE DECREASED [None]
  - HYPERHIDROSIS [None]
  - PHARMACEUTICAL PRODUCT COMPLAINT [None]
  - SNEEZING [None]
